FAERS Safety Report 9297085 (Version 1)
Quarter: 2013Q2

REPORT INFORMATION
  Report Type: Report from Study
  Country: SE (occurrence: SE)
  Receive Date: 20130519
  Receipt Date: 20130519
  Transmission Date: 20140414
  Serious: Yes (Hospitalization)
  Sender: FDA-Public Use
  Company Number: SE-ROCHE-1225353

PATIENT
  Sex: Female

DRUGS (13)
  1. MABTHERA [Suspect]
     Indication: RHEUMATOID ARTHRITIS
     Route: 042
     Dates: start: 20100907, end: 201206
  2. ARAVA [Concomitant]
     Route: 065
  3. PREDNISOLON [Concomitant]
     Route: 065
  4. ALVEDON [Concomitant]
     Route: 065
  5. ACETYLCYSTEIN [Concomitant]
     Route: 065
  6. KALCIPOS-D [Concomitant]
     Route: 065
  7. LOGIMAX [Concomitant]
     Route: 065
  8. OMEPRAZOL [Concomitant]
     Route: 065
  9. BRUFEN RETARD [Concomitant]
     Route: 065
  10. DIMOR [Concomitant]
     Route: 065
  11. SEREVENT [Concomitant]
     Route: 065
  12. AEROTIDE [Concomitant]
     Route: 065
  13. VENTOLINE [Concomitant]
     Route: 065

REACTIONS (1)
  - Confusional state [Not Recovered/Not Resolved]
